FAERS Safety Report 5798834-4 (Version None)
Quarter: 2008Q2

REPORT INFORMATION
  Report Type: 
  Country: None (occurrence: None)
  Receive Date: 20080630
  Receipt Date: 20080616
  Transmission Date: 20081010
  Serious: Yes (Death)
  Sender: FDA-Public Use
  Company Number: 001368

PATIENT
  Age: 45 Year
  Sex: Female

DRUGS (8)
  1. BUSULFEX [Suspect]
     Indication: STEM CELL TRANSPLANT
     Dosage: 5.3 ML INTRAVENOUS; 21.2 ML, DAILY DOSE; INTRAVENOUS; 15.9 ML, DAILY DOSE; INTRAVENOUS
     Route: 042
     Dates: start: 20070215, end: 20070215
  2. BUSULFEX [Suspect]
     Indication: STEM CELL TRANSPLANT
     Dosage: 5.3 ML INTRAVENOUS; 21.2 ML, DAILY DOSE; INTRAVENOUS; 15.9 ML, DAILY DOSE; INTRAVENOUS
     Route: 042
     Dates: start: 20070218, end: 20070218
  3. BUSULFEX [Suspect]
     Indication: STEM CELL TRANSPLANT
     Dosage: 5.3 ML INTRAVENOUS; 21.2 ML, DAILY DOSE; INTRAVENOUS; 15.9 ML, DAILY DOSE; INTRAVENOUS
     Route: 042
     Dates: start: 20070219, end: 20070219
  4. CYCLOPHOSPHAMIDE [Concomitant]
  5. VALPROATE SODIUM [Concomitant]
  6. NEUPOGEN [Concomitant]
  7. METHOTREXATE [Concomitant]
  8. TACROLIMUS [Concomitant]

REACTIONS (6)
  - ANOREXIA [None]
  - LEUKAEMIA RECURRENT [None]
  - LEUKOCYTOSIS [None]
  - MALAISE [None]
  - NAUSEA [None]
  - ORAL DISORDER [None]
